FAERS Safety Report 9830113 (Version 2)
Quarter: 2014Q1

REPORT INFORMATION
  Report Type: Report from Study
  Country: FR (occurrence: FR)
  Receive Date: 20140120
  Receipt Date: 20140120
  Transmission Date: 20141002
  Serious: Yes (Hospitalization, Other)
  Sender: FDA-Public Use
  Company Number: FR-ROCHE-1229459

PATIENT
  Sex: 0

DRUGS (6)
  1. BEVACIZUMAB [Suspect]
     Indication: COLORECTAL CANCER STAGE IV
     Route: 065
  2. BEVACIZUMAB [Suspect]
     Indication: METASTASES TO PERITONEUM
  3. FLUOROURACIL [Concomitant]
  4. OXALIPLATIN [Concomitant]
  5. FOLINIC ACID [Concomitant]
  6. IRINOTECAN [Concomitant]

REACTIONS (6)
  - Gastrointestinal fistula [Unknown]
  - Intra-abdominal haematoma [Unknown]
  - Abdominal abscess [Unknown]
  - Wound complication [Unknown]
  - Blood disorder [Unknown]
  - Venous thrombosis [Unknown]
